FAERS Safety Report 9030510 (Version 4)
Quarter: 2013Q2

REPORT INFORMATION
  Report Type: Report from Study
  Country: US (occurrence: US)
  Receive Date: 20130122
  Receipt Date: 20130403
  Transmission Date: 20140414
  Serious: No
  Sender: FDA-Public Use
  Company Number: US-VERTEX PHARMACEUTICALS INC.-2013-000869

PATIENT
  Age: 63 Year
  Sex: Male
  Weight: 100 kg

DRUGS (6)
  1. VX-950 (TELAPREVIR) [Suspect]
     Indication: HEPATITIS C
     Dosage: 750 MG, TID
     Route: 048
     Dates: start: 20130114
  2. RIBASPHERE [Suspect]
     Indication: HEPATITIS C
     Dosage: 600 MG, BID
     Route: 048
     Dates: start: 20130114
  3. PEGASYS [Suspect]
     Indication: HEPATITIS C
     Dosage: 180 ?G, WEEKLY
     Route: 058
     Dates: start: 20130114
  4. PROPRANOLOL [Concomitant]
     Dosage: 20 MG, QD
     Route: 048
  5. BENADRYL [Concomitant]
     Dosage: 25 MG, QD
     Route: 048
  6. MULTIVITAMIN [Concomitant]
     Dosage: 1 DF, QD
     Route: 048

REACTIONS (9)
  - Oedema [Unknown]
  - Swelling [Unknown]
  - Influenza like illness [Unknown]
  - Headache [Unknown]
  - Dry mouth [Unknown]
  - Chills [Unknown]
  - Fatigue [Unknown]
  - Rash [Unknown]
  - Diarrhoea [Unknown]
